FAERS Safety Report 15498093 (Version 1)
Quarter: 2018Q4

REPORT INFORMATION
  Report Type: Spontaneous
  Country: FR (occurrence: FR)
  Receive Date: 20181015
  Receipt Date: 20181015
  Transmission Date: 20190205
  Serious: Yes (Death, Congenital Anomaly)
  Sender: FDA-Public Use
  Company Number: FR-BAUSCH-BL-2018-027686

PATIENT

DRUGS (1)
  1. ACICLOVIR [Suspect]
     Active Substance: ACYCLOVIR
     Indication: EXPOSURE TO COMMUNICABLE DISEASE
     Dosage: UNKNOWN DOSAGE
     Route: 064
     Dates: start: 20180130, end: 20180201

REACTIONS (2)
  - Spina bifida [Fatal]
  - Maternal exposure during pregnancy [Recovered/Resolved]
